FAERS Safety Report 7834100-0 (Version None)
Quarter: 2011Q4

REPORT INFORMATION
  Report Type: 
  Country: None (occurrence: None)
  Receive Date: 20111024
  Receipt Date: 20111024
  Transmission Date: 20120403
  Serious: Yes (Death)
  Sender: FDA-Public Use
  Company Number: None

PATIENT
  Sex: Male
  Weight: 102.05 kg

DRUGS (3)
  1. BUPROPION HYDROCHLORIDE [Concomitant]
     Indication: DEPRESSION
     Dosage: 150 MG
     Route: 048
     Dates: start: 20110629, end: 20110730
  2. BUPROPION HYDROCHLORIDE [Concomitant]
     Indication: SMOKING CESSATION THERAPY
     Dosage: 150 MG
     Route: 048
     Dates: start: 20110629, end: 20110730
  3. VENLAFAXINE HCL EXTENDED-RELEASE [Suspect]
     Indication: DEPRESSION
     Dosage: 75 MG
     Route: 048

REACTIONS (1)
  - COMPLETED SUICIDE [None]
